FAERS Safety Report 15255592 (Version 4)
Quarter: 2018Q3

REPORT INFORMATION
  Report Type: Report from Study
  Country: BR (occurrence: BR)
  Receive Date: 20180808
  Receipt Date: 20180906
  Transmission Date: 20181010
  Serious: Yes (Hospitalization, Other)
  Sender: FDA-Public Use
  Company Number: BR-TAKEDA-2018TUS024117

PATIENT
  Age: 51 Year
  Sex: Female

DRUGS (2)
  1. HYDROCHLOROTHIAZIDE. [Concomitant]
     Active Substance: HYDROCHLOROTHIAZIDE
     Indication: HYPERTENSION
     Dosage: UNK
     Dates: start: 2016
  2. VEDOLIZUMAB [Suspect]
     Active Substance: VEDOLIZUMAB
     Indication: CROHN^S DISEASE
     Dosage: 300 MG, UNK
     Route: 042
     Dates: start: 20180611

REACTIONS (7)
  - Pain in extremity [Unknown]
  - Rheumatoid arthritis [Unknown]
  - Neck pain [Unknown]
  - Blood pressure increased [Unknown]
  - Post procedural complication [Unknown]
  - Intervertebral disc protrusion [Recovering/Resolving]
  - Poor venous access [Unknown]

NARRATIVE: CASE EVENT DATE: 20180705
